FAERS Safety Report 12154942 (Version 1)
Quarter: 2016Q1

REPORT INFORMATION
  Report Type: Spontaneous
  Country: US (occurrence: None)
  Receive Date: 20160307
  Receipt Date: 20160307
  Transmission Date: 20160526
  Serious: Yes (Other)
  Sender: FDA-Public Use
  Company Number: US2016022532

PATIENT
  Age: 95 Year
  Sex: Male

DRUGS (1)
  1. GAVISCON REGULAR STRENGTH [Suspect]
     Active Substance: ALUMINUM HYDROXIDE\MAGNESIUM TRISILICATE
     Indication: DYSPEPSIA
     Dosage: 8 TABLESPOONSFULS, UNK
     Dates: start: 20160209

REACTIONS (10)
  - Poisoning [None]
  - Faeces discoloured [None]
  - Condition aggravated [None]
  - Constipation [None]
  - Vomiting [None]
  - Dyspnoea [None]
  - Inappropriate schedule of drug administration [None]
  - Overdose [None]
  - Urinary tract infection [None]
  - Enuresis [None]

NARRATIVE: CASE EVENT DATE: 20160209
